FAERS Safety Report 4532513-6 (Version None)
Quarter: 2004Q4

REPORT INFORMATION
  Report Type: 
  Country: None (occurrence: None)
  Receive Date: 20041206
  Receipt Date: 20041027
  Transmission Date: 20050328
  Serious: Yes (Hospitalization)
  Sender: FDA-Public Use
  Company Number: USA041081937

PATIENT
  Age: 56 Year
  Sex: Female

DRUGS (3)
  1. ALIMTA [Suspect]
     Indication: NON-SMALL CELL LUNG CANCER
     Dosage: 500 MG/M2
     Dates: start: 20041018
  2. VITAMIN SUPPLEMENTATION [Concomitant]
  3. FOLIC ACID [Concomitant]

REACTIONS (5)
  - CONTUSION [None]
  - EYE REDNESS [None]
  - LACRIMATION INCREASED [None]
  - PERIORBITAL HAEMATOMA [None]
  - VENA CAVA THROMBOSIS [None]
